FAERS Safety Report 7102644-5 (Version None)
Quarter: 2010Q4

REPORT INFORMATION
  Report Type: 
  Country: None (occurrence: None)
  Receive Date: 20101115
  Receipt Date: 20101105
  Transmission Date: 20110411
  Serious: Yes (Hospitalization)
  Sender: FDA-Public Use
  Company Number: JP-ASTRAZENECA-2010SE50988

PATIENT
  Age: 70 Year
  Sex: Male

DRUGS (4)
  1. DIPRIVAN [Suspect]
     Indication: INDUCTION OF ANAESTHESIA
     Route: 042
     Dates: start: 20101020, end: 20101020
  2. ESLAX [Suspect]
     Route: 042
     Dates: start: 20101020, end: 20101020
  3. BRIDION [Suspect]
     Route: 042
     Dates: start: 20101020, end: 20101020
  4. CEFAMEZIN [Concomitant]
     Route: 065
     Dates: start: 20101020, end: 20101020

REACTIONS (3)
  - ALANINE AMINOTRANSFERASE INCREASED [None]
  - ASPARTATE AMINOTRANSFERASE INCREASED [None]
  - BLOOD BILIRUBIN INCREASED [None]
